FAERS Safety Report 17898580 (Version 1)
Quarter: 2020Q2

REPORT INFORMATION
  Report Type: Spontaneous
  Country: US (occurrence: US)
  Receive Date: 20200616
  Receipt Date: 20200616
  Transmission Date: 20200714
  Serious: No
  Sender: FDA-Public Use
  Company Number: US-BAUSCH-BL-2020-016509

PATIENT
  Age: 76 Year
  Sex: Female

DRUGS (2)
  1. TRULANCE [Suspect]
     Active Substance: PLECANATIDE
     Indication: CONSTIPATION
     Dosage: STARTED SEVERAL MONTHS AGO
     Route: 048
  2. TRULANCE [Suspect]
     Active Substance: PLECANATIDE
     Dosage: DOSE INCREASED
     Route: 048

REACTIONS (4)
  - Incorrect dosage administered [Unknown]
  - Therapeutic product effect incomplete [Unknown]
  - Inability to afford medication [Unknown]
  - Product prescribing error [Unknown]

NARRATIVE: CASE EVENT DATE: 2020
